FAERS Safety Report 7512380-9 (Version None)
Quarter: 2011Q2

REPORT INFORMATION
  Report Type: 
  Country: None (occurrence: None)
  Receive Date: 20110520
  Receipt Date: 20110512
  Transmission Date: 20111010
  Serious: Yes (Other)
  Sender: FDA-Public Use
  Company Number: AXC-2011-000223

PATIENT
  Age: 63 Year
  Sex: Female

DRUGS (19)
  1. ASPIRIN [Concomitant]
  2. OMEPRAZOLE [Concomitant]
  3. CALCICHEW (CALCIUM CARBONATE) [Concomitant]
  4. FEXOFENADINE HCL [Concomitant]
  5. METHYLPREDNISOLONE ACETATE [Concomitant]
  6. RAMIPRIL [Concomitant]
  7. SIMVASTATIN [Concomitant]
  8. DOMPERIDONE (DOMPERIDONE) [Concomitant]
  9. ISOPROPYL MYRISTATE/PARAFFIN, LIQUID (ISOPROPYL MYRISTATELPARAFFIN, LI [Concomitant]
  10. PRAMIPEXOLE DIHYCHLLORIDE [Concomitant]
  11. VITAMIN B W/VITAMIN C/VITAMIN E (ASCORBIC ACID, TOCOPHEROL, VITAMIN B [Concomitant]
  12. SUCRALFATE [Suspect]
     Indication: PRODUCT USED FOR UNKNOWN INDICATION
     Dates: start: 20110210
  13. DICLOFENAC SODIUM ER (DICLOFENAC SODIUM) [Concomitant]
  14. CODEINE PHOSPHATE (CODEINE PHOSPHATE) [Concomitant]
  15. AMOLENIC ACID (GAMOLENIC ACID) [Concomitant]
  16. LACRI-LUBE S.O.P. (CHLOROBUTANOL, PARAFFIN, LIQUID, WHITE SOFT PARAFFI [Concomitant]
  17. NICORANDIL (NICORANDIL) [Concomitant]
  18. QUININE SULFATE [Concomitant]
  19. CO-AMILOFRUSE (AMILORIDE HYDROCHLORIDE, FUROSEMIDE) [Concomitant]

REACTIONS (2)
  - HAIR TEXTURE ABNORMAL [None]
  - ONYCHOCLASIS [None]
